FAERS Safety Report 17447253 (Version 1)
Quarter: 2020Q1

REPORT INFORMATION
  Report Type: Spontaneous
  Country: US (occurrence: US)
  Receive Date: 20200221
  Receipt Date: 20200221
  Transmission Date: 20200409
  Serious: No
  Sender: FDA-Public Use
  Company Number: US-AMNEAL PHARMACEUTICALS-2019-IPXL-00601

PATIENT
  Sex: Female

DRUGS (2)
  1. EMVERM [Suspect]
     Active Substance: MEBENDAZOLE
     Indication: ENTEROBIASIS
     Dosage: 100 MILLIGRAM, SINGLE
     Route: 048
     Dates: start: 20190206, end: 20190206
  2. EMVERM [Suspect]
     Active Substance: MEBENDAZOLE
     Dosage: 100 MILLIGRAM, SINGLE
     Route: 048
     Dates: start: 20190219, end: 20190219

REACTIONS (2)
  - Vaginal discharge [None]
  - Drug ineffective [Unknown]
